FAERS Safety Report 8984501 (Version 1)
Quarter: 2012Q4

REPORT INFORMATION
  Report Type: 
  Country: CH (occurrence: CH)
  Receive Date: 20121225
  Receipt Date: 20121225
  Transmission Date: 20130627
  Serious: Yes (Death)
  Sender: FDA-Public Use
  Company Number: CH-009507513-1212CHE008630

PATIENT
  Age: 81 Year
  Sex: Male
  Weight: 80 kg

DRUGS (12)
  1. REMERON [Suspect]
     Indication: DEPRESSIVE SYMPTOM
     Dosage: 30 mg, qd
     Route: 048
     Dates: start: 20121207, end: 20121209
  2. REMERON [Suspect]
     Indication: DEPRESSIVE SYMPTOM
     Dosage: 15 mg, qd
     Dates: start: 20121205, end: 20121206
  3. CLEXANE (ENOXAPARIN SODIUM) [Suspect]
     Indication: PROPHYLAXIS
     Dosage: 80 mg, bid
     Route: 048
     Dates: start: 20121207, end: 20121209
  4. ASPIRIN CARDIO [Suspect]
     Indication: THROMBOSIS PROPHYLAXIS
     Dosage: 100 mg, qd
     Route: 048
     Dates: end: 20121209
  5. LIQUEMIN (HEPARIN SODIUM) [Suspect]
     Indication: THROMBOSIS PROPHYLAXIS
     Dosage: 5000 IU, bid
     Route: 058
     Dates: start: 20121208, end: 20121209
  6. DAFALGAN [Concomitant]
     Indication: PAIN
     Dosage: 500 mg, tid, long term use as needed
     Route: 048
  7. ZANIDIP [Concomitant]
     Indication: ESSENTIAL HYPERTENSION
     Dosage: 15 mg, qd, before long term use at 10 mg per day
     Route: 048
     Dates: start: 20121205
  8. TEMGESIC [Concomitant]
     Indication: PAIN
     Dosage: 0.2 mg, bid, as needed
     Route: 060
  9. NEPHROTRANS [Concomitant]
     Indication: RENAL FAILURE CHRONIC
     Dosage: 1 UNK, UNK
     Route: 048
  10. VITARUBIN (CYANOCOBALAMIN) [Concomitant]
     Indication: VITAMIN B12 DEFICIENCY
     Dosage: 1 DF, qd,standard scheme for 1 week 1 per day,then 1 month 1 per week the 1 per month
     Route: 030
     Dates: start: 20121204
  11. DISTRANEURIN [Concomitant]
     Indication: ANXIETY DISORDER
     Dosage: 300 mg, UNK
     Route: 048
     Dates: start: 20121208, end: 20121209
  12. HALDOL [Concomitant]
     Indication: DELIRIUM
     Dosage: 1 mg, bid (1x subcutaneous and 1xintravenous)
     Route: 057
     Dates: start: 20121208, end: 20121209

REACTIONS (5)
  - Haemorrhage intracranial [Fatal]
  - Therapeutic response increased [Fatal]
  - Drug prescribing error [Fatal]
  - Fall [Unknown]
  - Delirium [Unknown]
